FAERS Safety Report 23225122 (Version 1)
Quarter: 2023Q4

REPORT INFORMATION
  Report Type: Spontaneous
  Country: US (occurrence: US)
  Receive Date: 20231124
  Receipt Date: 20231124
  Transmission Date: 20240109
  Serious: Yes (Other)
  Sender: FDA-Public Use
  Company Number: US-AMGEN-USASP2023207446

PATIENT
  Age: 29 Year
  Sex: Male

DRUGS (2)
  1. NEUPOGEN [Suspect]
     Active Substance: FILGRASTIM
     Indication: Combined immunodeficiency
     Dosage: UNK
     Route: 065
  2. PLERIXAFOR [Suspect]
     Active Substance: PLERIXAFOR
     Indication: Combined immunodeficiency
     Dosage: UNK
     Route: 065

REACTIONS (4)
  - Arthritis reactive [Recovered/Resolved]
  - Treatment failure [Unknown]
  - Urethritis chlamydial [Recovered/Resolved]
  - Adverse event [Unknown]
